FAERS Safety Report 22242141 (Version 8)
Quarter: 2024Q3

REPORT INFORMATION
  Report Type: Report from Study
  Country: US (occurrence: US)
  Receive Date: 20230421
  Receipt Date: 20240926
  Transmission Date: 20241017
  Serious: Yes (Hospitalization)
  Sender: BOEHRINGER INGELHEIM
  Company Number: US-BoehringerIngelheim-2023-BI-229292

PATIENT
  Sex: Male

DRUGS (2)
  1. OFEV [Suspect]
     Active Substance: NINTEDANIB
     Indication: Idiopathic pulmonary fibrosis
     Route: 048
     Dates: start: 20210524
  2. OFEV [Suspect]
     Active Substance: NINTEDANIB
     Route: 048

REACTIONS (9)
  - Ulcer haemorrhage [Unknown]
  - Epistaxis [Unknown]
  - Abdominal discomfort [Recovered/Resolved]
  - Sinusitis bacterial [Unknown]
  - Abdominal distension [Recovering/Resolving]
  - Sinusitis fungal [Unknown]
  - Arterial occlusive disease [Unknown]
  - Gastrointestinal sounds abnormal [Unknown]
  - Gastrointestinal disorder [Recovered/Resolved]
